FAERS Safety Report 8837146 (Version 2)
Quarter: 2012Q4

REPORT INFORMATION
  Report Type: 
  Country: US (occurrence: US)
  Receive Date: 20121012
  Receipt Date: 20121217
  Transmission Date: 20130627
  Serious: No
  Sender: FDA-Public Use
  Company Number: US-009507513-1210USA003553

PATIENT
  Sex: Female

DRUGS (2)
  1. IMPLANON [Suspect]
     Dosage: UNK
     Route: 059
     Dates: start: 20110911
  2. IMPLANON [Suspect]
     Dosage: UNK
     Dates: start: 20120812

REACTIONS (2)
  - Staphylococcal infection [Unknown]
  - Rash [Unknown]
